FAERS Safety Report 6692695-7 (Version None)
Quarter: 2010Q2

REPORT INFORMATION
  Report Type: 
  Country: None (occurrence: None)
  Receive Date: 20100422
  Receipt Date: 20100408
  Transmission Date: 20101027
  Serious: Yes (Life-Threatening, Hospitalization, Disabling)
  Sender: FDA-Public Use
  Company Number: FR-PFIZER INC-2010044538

PATIENT
  Age: 60 Year
  Sex: Male

DRUGS (8)
  1. TAHOR [Suspect]
     Dosage: 10 MG, 2X/DAY
     Route: 048
  2. INNOHEP [Suspect]
     Dosage: 0.9 ML, 1X/DAY
     Route: 058
     Dates: start: 20081112
  3. COUMADIN [Suspect]
     Dosage: UNK
     Route: 048
     Dates: end: 20081122
  4. PLAVIX [Suspect]
     Dosage: 75 MG, 1X/DAY
     Route: 048
     Dates: start: 20081112, end: 20081122
  5. CORDARONE [Suspect]
     Dosage: 200 MG, 2X/DAY
     Route: 048
  6. COVERSYL [Concomitant]
     Dosage: 4 MG, 1X/DAY
  7. LASIX [Concomitant]
     Dosage: 40 MG, 1X/DAY
  8. DIFFU K [Concomitant]
     Dosage: 1 DF, 2X/DAY

REACTIONS (2)
  - CEREBELLAR HAEMATOMA [None]
  - COMA [None]
